FAERS Safety Report 24108217 (Version 3)
Quarter: 2024Q3

REPORT INFORMATION
  Report Type: Spontaneous
  Country: US (occurrence: US)
  Receive Date: 20240718
  Receipt Date: 20240823
  Transmission Date: 20241016
  Serious: Yes (Hospitalization, Other)
  Sender: AMGEN
  Company Number: US-AMGEN-USASP2024139064

PATIENT
  Age: 64 Year
  Sex: Male

DRUGS (2)
  1. REPATHA [Suspect]
     Active Substance: EVOLOCUMAB
     Indication: Low density lipoprotein increased
     Dosage: 140 MILLIGRAM, Q2WK
     Route: 065
     Dates: start: 2024
  2. INSULIN NOS [Concomitant]
     Active Substance: INSULIN NOS
     Route: 065

REACTIONS (8)
  - Cerebrovascular accident [Recovered/Resolved]
  - Thrombosis [Unknown]
  - Cellulitis [Unknown]
  - Blood test abnormal [Unknown]
  - Injection site bruising [Recovered/Resolved]
  - Dyslexia [Unknown]
  - Fall [Unknown]
  - Cardiac disorder [Unknown]
